FAERS Safety Report 8295581-4 (Version None)
Quarter: 2012Q2

REPORT INFORMATION
  Report Type: 
  Country: None (occurrence: None)
  Receive Date: 20120413
  Receipt Date: 20120413
  Transmission Date: 20120825
  Serious: No
  Sender: FDA-Public Use
  Company Number: None

PATIENT
  Age: 20 Year
  Sex: Female

DRUGS (1)
  1. SEPTRA [Suspect]
     Indication: LIVER INJURY
     Dates: start: 20081009, end: 20081016

REACTIONS (15)
  - ACUTE HEPATIC FAILURE [None]
  - ABDOMINAL PAIN [None]
  - NAUSEA [None]
  - HEPATITIS ACUTE [None]
  - PYREXIA [None]
  - CHILLS [None]
  - LYMPH NODE PAIN [None]
  - DIARRHOEA [None]
  - HEADACHE [None]
  - ARTHROPATHY [None]
  - ARTHRALGIA [None]
  - SYSTEMIC LUPUS ERYTHEMATOSUS [None]
  - VOMITING [None]
  - MYALGIA [None]
  - PANCYTOPENIA [None]
